FAERS Safety Report 19241229 (Version 1)
Quarter: 2021Q2

REPORT INFORMATION
  Report Type: Spontaneous
  Country: DE (occurrence: DE)
  Receive Date: 20210510
  Receipt Date: 20210510
  Transmission Date: 20210717
  Serious: Yes (Other)
  Sender: FDA-Public Use
  Company Number: DE-B.I. PHARMACEUTICALS,INC./RIDGEFIELD-2021-BI-100408

PATIENT
  Age: 66 Year
  Sex: Female

DRUGS (10)
  1. PEMBROLIZUMAB. [Suspect]
     Active Substance: PEMBROLIZUMAB
     Indication: PRODUCT USED FOR UNKNOWN INDICATION
     Dates: start: 201905, end: 201907
  2. DENOSUMAB [Concomitant]
     Active Substance: DENOSUMAB
     Indication: ONCOLOGIC COMPLICATION
  3. CHRISTROSE [Concomitant]
     Indication: PRODUCT USED FOR UNKNOWN INDICATION
     Dosage: AQUOS. SUBCUTANEOUS, 3X/WEEK IN D6 POTENTIZATION
     Route: 058
     Dates: start: 201906
  4. VITAMIN D3 [Concomitant]
     Active Substance: CHOLECALCIFEROL
     Indication: HYPOVITAMINOSIS
     Dates: start: 201906
  5. GILOTRIF [Suspect]
     Active Substance: AFATINIB
     Indication: LUNG ADENOCARCINOMA
     Dates: end: 2016
  6. CHRISTROSE [Concomitant]
     Dosage: DAILY INHALATION IN D12 POTENTIZATION
     Route: 055
     Dates: start: 201906
  7. CIMETIDINE [Concomitant]
     Active Substance: CIMETIDINE
     Indication: DRUG THERAPY
     Dates: start: 201906
  8. GILOTRIF [Suspect]
     Active Substance: AFATINIB
     Dates: start: 201803
  9. SELENIUM [Concomitant]
     Active Substance: SELENIUM
     Indication: NUTRITIONAL SUPPLEMENTATION
     Dates: start: 201906
  10. TROFOSFAMIDE [Concomitant]
     Active Substance: TROFOSFAMIDE
     Indication: PRODUCT USED FOR UNKNOWN INDICATION
     Dates: start: 201906

REACTIONS (12)
  - Metastases to central nervous system [Unknown]
  - Metastases to central nervous system [Unknown]
  - Hepatotoxicity [Unknown]
  - Metastases to meninges [Unknown]
  - Neoplasm progression [Unknown]
  - Gait disturbance [Unknown]
  - Brain oedema [Unknown]
  - Nausea [Unknown]
  - Vomiting [Unknown]
  - Gastrointestinal toxicity [Unknown]
  - Metastases to central nervous system [Unknown]
  - Aphasia [Unknown]

NARRATIVE: CASE EVENT DATE: 2018
